FAERS Safety Report 4718067-X (Version None)
Quarter: 2005Q3

REPORT INFORMATION
  Report Type: 
  Country: None (occurrence: None)
  Receive Date: 20050718
  Receipt Date: 20050413
  Transmission Date: 20060218
  Serious: No
  Sender: FDA-Public Use
  Company Number: 2005000728

PATIENT
  Age: 47 Year
  Sex: Male
  Weight: 90.7194 kg

DRUGS (6)
  1. TARCEVA [Suspect]
     Indication: NON-SMALL CELL LUNG CANCER
     Dosage: 150 MG (QD), ORAL
     Route: 048
     Dates: start: 20050316
  2. MORPHINE [Concomitant]
  3. PERCOCET [Concomitant]
  4. FLEXERIL [Concomitant]
  5. CALCIUM (CALCIUM) [Concomitant]
  6. VITAMINS (VITAMINS) [Concomitant]

REACTIONS (6)
  - ACNE [None]
  - ASTHMA [None]
  - CONJUNCTIVITIS [None]
  - DERMATITIS ACNEIFORM [None]
  - RASH [None]
  - RHINORRHOEA [None]
